FAERS Safety Report 11944535 (Version 4)
Quarter: 2016Q1

REPORT INFORMATION
  Report Type: Other
  Country: US (occurrence: US)
  Receive Date: 20160125
  Receipt Date: 20160324
  Transmission Date: 20160526
  Serious: Yes (Other)
  Sender: FDA-Public Use
  Company Number: US-ACORDA-ACO_120737_2016

PATIENT
  Age: 54 Year
  Sex: Male

DRUGS (3)
  1. AMPYRA [Suspect]
     Active Substance: DALFAMPRIDINE
     Indication: GAIT DISTURBANCE
     Dosage: 10 MG, BID
     Route: 048
     Dates: start: 20110125, end: 2015
  2. AMPYRA [Suspect]
     Active Substance: DALFAMPRIDINE
     Dosage: 10 MG, QD
     Route: 065
     Dates: start: 2015, end: 2015
  3. AMPYRA [Suspect]
     Active Substance: DALFAMPRIDINE
     Dosage: 10 MG, BID
     Route: 048
     Dates: start: 2015

REACTIONS (11)
  - Confusional state [Recovered/Resolved]
  - Gait disturbance [Unknown]
  - Neck pain [Unknown]
  - Unresponsive to stimuli [Recovered/Resolved]
  - Head injury [Unknown]
  - Headache [Unknown]
  - Seizure [Recovered/Resolved]
  - Laceration [Unknown]
  - Hypoaesthesia [Unknown]
  - Pain in extremity [Unknown]
  - Fatigue [Unknown]

NARRATIVE: CASE EVENT DATE: 20151121
